FAERS Safety Report 17551470 (Version 1)
Quarter: 2020Q1

REPORT INFORMATION
  Report Type: Spontaneous
  Country: US (occurrence: US)
  Receive Date: 20200317
  Receipt Date: 20200317
  Transmission Date: 20200409
  Serious: Yes (Other)
  Sender: FDA-Public Use
  Company Number: None

PATIENT
  Age: 63 Year
  Sex: Female
  Weight: 57.15 kg

DRUGS (1)
  1. AMLODIPINE [Suspect]
     Active Substance: AMLODIPINE BESYLATE
     Indication: HYPERTENSION
     Route: 048
     Dates: start: 20190919, end: 20200101

REACTIONS (4)
  - Mouth ulceration [None]
  - Inflammation [None]
  - Oral soft tissue biopsy [None]
  - Eosinophil count [None]

NARRATIVE: CASE EVENT DATE: 20191101
